FAERS Safety Report 6755558-4 (Version None)
Quarter: 2010Q2

REPORT INFORMATION
  Report Type: 
  Country: None (occurrence: None)
  Receive Date: 20100602
  Receipt Date: 20100518
  Transmission Date: 20101027
  Serious: Yes (Other)
  Sender: FDA-Public Use
  Company Number: PHHY2010IT32508

PATIENT
  Age: 86 Year
  Sex: Female

DRUGS (2)
  1. VISUDYNE [Suspect]
     Indication: CHOROIDAL NEOVASCULARISATION
  2. KENALOG [Concomitant]

REACTIONS (5)
  - BLINDNESS [None]
  - RETINAL DETACHMENT [None]
  - RETINAL INFARCTION [None]
  - RETINAL TEAR [None]
  - VITREOUS HAEMORRHAGE [None]
